FAERS Safety Report 17017945 (Version 1)
Quarter: 2019Q4

REPORT INFORMATION
  Report Type: Spontaneous
  Country: US (occurrence: US)
  Receive Date: 20191111
  Receipt Date: 20191111
  Transmission Date: 20200122
  Serious: Yes (Hospitalization, Other)
  Sender: FDA-Public Use
  Company Number: US-009507513-1911USA002541

PATIENT
  Age: 79 Year
  Sex: Male
  Weight: 84.8 kg

DRUGS (1)
  1. KEYTRUDA [Suspect]
     Active Substance: PEMBROLIZUMAB

REACTIONS (7)
  - Hypoxia [Unknown]
  - Transitional cell cancer of renal pelvis and ureter metastatic [Unknown]
  - Cough [Not Recovered/Not Resolved]
  - Pneumonitis [Not Recovered/Not Resolved]
  - Acute respiratory failure [Unknown]
  - Immune-mediated pneumonitis [Unknown]
  - Blood creatinine increased [Unknown]

NARRATIVE: CASE EVENT DATE: 20170205
